FAERS Safety Report 19564410 (Version 1)
Quarter: 2021Q3

REPORT INFORMATION
  Report Type: Spontaneous
  Country: US (occurrence: US)
  Receive Date: 20210716
  Receipt Date: 20210716
  Transmission Date: 20211014
  Serious: Yes (Hospitalization, Other)
  Sender: FDA-Public Use
  Company Number: US-TEVA-2021-US-1932810

PATIENT
  Age: 65 Year
  Sex: Female
  Weight: 102.15 kg

DRUGS (29)
  1. DILTIAZEM. [Concomitant]
     Active Substance: DILTIAZEM
     Route: 048
  2. CRESTOR [Concomitant]
     Active Substance: ROSUVASTATIN CALCIUM
     Route: 048
  3. LANTUS SOLOSTAR [Concomitant]
     Active Substance: INSULIN GLARGINE
     Dosage: 75 UNITS, QHS X 30 DAYS
     Route: 058
  4. DOCETAXEL SAGENT [Suspect]
     Active Substance: DOCETAXEL
     Dosage: DOSAGE DETAILS: DOSE REDUCED TO 56.25 MG/M2
     Route: 040
     Dates: start: 2013
  5. CITALOPRAM [Concomitant]
     Active Substance: CITALOPRAM HYDROBROMIDE
     Route: 048
  6. DILAUDID [Concomitant]
     Active Substance: HYDROMORPHONE HYDROCHLORIDE
     Indication: PAIN
     Dosage: CAN TAKE 2 PILLS EVERY 4 HOURS AS NEEDED FOR PAIN
     Route: 048
     Dates: start: 2013
  7. HUMALOG KWIKPEN [Concomitant]
     Active Substance: INSULIN LISPRO
     Dosage: 100/ML INSULN PEN AS DIRECTED, PRE?MEALS, APPROXIMATELY 100 UNITS TOTAL PER SLIDING SCALE X 30 DAYS
     Route: 065
  8. ATIVAN [Concomitant]
     Active Substance: LORAZEPAM
     Route: 042
     Dates: start: 2013
  9. COMPAZINE [Concomitant]
     Active Substance: PROCHLORPERAZINE MALEATE
     Route: 048
     Dates: start: 2013
  10. METFORMIN [Concomitant]
     Active Substance: METFORMIN HYDROCHLORIDE
     Dosage: DOSAGE DETAILS: 500 MG
     Route: 065
  11. OXYCODONE [Concomitant]
     Active Substance: OXYCODONE
     Route: 048
     Dates: start: 2013
  12. DOCETAXEL SANOFI?AVENTIS [Suspect]
     Active Substance: DOCETAXEL
     Dosage: DOSAGE DETAILS: DOSE REDUCED TO 56.25 MG/M2
     Route: 040
     Dates: start: 2013
  13. ZANTAC [Concomitant]
     Active Substance: RANITIDINE HYDROCHLORIDE
     Dosage: DOSAGE DETAILS: 150 MG
     Route: 065
  14. DIOVAN [Concomitant]
     Active Substance: VALSARTAN
     Route: 048
  15. NEULASTA [Concomitant]
     Active Substance: PEGFILGRASTIM
     Indication: BREAST CANCER FEMALE
     Dosage: 6 MG (6MG/0.6ML DISP SYRIN ML), EVERY 3 WEEKS CHEMO FOR 4 CYCLES.
     Route: 058
     Dates: start: 2013
  16. DECADRON [Concomitant]
     Active Substance: DEXAMETHASONE
     Route: 042
     Dates: start: 2013
  17. LORAZEPAM. [Concomitant]
     Active Substance: LORAZEPAM
     Route: 048
  18. LANTUS [Concomitant]
     Active Substance: INSULIN GLARGINE
     Route: 065
  19. PRADAXA [Concomitant]
     Active Substance: DABIGATRAN ETEXILATE MESYLATE
     Dosage: DOSAGE DETAILS: 150 MG
     Route: 065
  20. CYTOXAN [Concomitant]
     Active Substance: CYCLOPHOSPHAMIDE
     Indication: BREAST CANCER FEMALE
     Dosage: 450 MG/M2
     Route: 040
     Dates: start: 2013
  21. LASIX [Concomitant]
     Active Substance: FUROSEMIDE
     Route: 048
  22. DOCETAXEL SANOFI?AVENTIS [Suspect]
     Active Substance: DOCETAXEL
     Indication: BREAST CANCER FEMALE
     Dosage: DOSAGE DETAILS: 4 CYCLES, DOSAGE: 75 MG/M2
     Route: 040
     Dates: start: 20130513, end: 201308
  23. WELLBUTRIN [Concomitant]
     Active Substance: BUPROPION HYDROCHLORIDE
     Dosage: DOSAGE DETAILS: 150 MG
     Route: 065
  24. ZOFRAN [Concomitant]
     Active Substance: ONDANSETRON HYDROCHLORIDE
     Route: 048
     Dates: start: 2013
  25. DOCETAXEL SAGENT [Suspect]
     Active Substance: DOCETAXEL
     Indication: BREAST CANCER FEMALE
     Dosage: DOSAGE DETAILS: 4 CYCLES, DOSAGE: 75 MG/M2
     Route: 040
     Dates: start: 20130513, end: 201308
  26. CLARITIN [Concomitant]
     Active Substance: LORATADINE
     Route: 048
  27. DECADRON [Concomitant]
     Active Substance: DEXAMETHASONE
     Dosage: TAKE ONE THE NIGHT BEFORE, THE MORNING OFF, THE DAY AFTER CHEMO. REPEAT WITH EACH CYCLE
     Route: 048
     Dates: start: 2013
  28. OXYCODONE [Concomitant]
     Active Substance: OXYCODONE
     Route: 048
  29. FUROSEMIDE. [Concomitant]
     Active Substance: FUROSEMIDE
     Route: 048
     Dates: start: 2013

REACTIONS (12)
  - Hair texture abnormal [Not Recovered/Not Resolved]
  - Alopecia totalis [Not Recovered/Not Resolved]
  - Weight increased [Unknown]
  - Diarrhoea [Unknown]
  - Pain [Unknown]
  - Dehydration [Unknown]
  - Hair colour changes [Not Recovered/Not Resolved]
  - Nausea [Recovered/Resolved]
  - Vomiting [Unknown]
  - Fatigue [Unknown]
  - Toxicity to various agents [Unknown]
  - Oedema peripheral [Unknown]

NARRATIVE: CASE EVENT DATE: 2013
